FAERS Safety Report 9798202 (Version 4)
Quarter: 2015Q2

REPORT INFORMATION
  Report Type: Spontaneous
  Country: US (occurrence: US)
  Receive Date: 20140106
  Receipt Date: 20150427
  Transmission Date: 20150821
  Serious: Yes (Hospitalization, Other)
  Sender: FDA-Public Use
  Company Number: US-PFIZER INC-2014001095

PATIENT
  Age: 68 Year
  Sex: Female
  Weight: 75 kg

DRUGS (4)
  1. FOLIC ACID. [Concomitant]
     Active Substance: FOLIC ACID
     Dosage: 1MG TABLET DAILY EXCEPT SATURDAYS
  2. CELEBREX [Suspect]
     Active Substance: CELECOXIB
     Indication: RHEUMATOID ARTHRITIS
     Dosage: 200 MG, DAILY
  3. LYRICA [Suspect]
     Active Substance: PREGABALIN
     Indication: FIBROMYALGIA
     Dosage: 75 MG, 5 OR 6 DAILY (DEPENDING ON HOW LEGS FEEL)
  4. METHOTREXATE [Concomitant]
     Active Substance: METHOTREXATE
     Dosage: SIX 2.5MG TABLETS ON SATURDAYS

REACTIONS (3)
  - Femur fracture [Unknown]
  - Foot deformity [Unknown]
  - Activities of daily living impaired [Unknown]
